FAERS Safety Report 11758551 (Version 1)
Quarter: 2015Q4

REPORT INFORMATION
  Report Type: Report from Study
  Country: JP (occurrence: JP)
  Receive Date: 20151120
  Receipt Date: 20151120
  Transmission Date: 20160304
  Serious: Yes (Other)
  Sender: FDA-Public Use
  Company Number: JP-ASTELLAS-2015JP001236

PATIENT
  Age: 58 Year
  Sex: Female
  Weight: 52 kg

DRUGS (20)
  1. MIRABEGRON [Suspect]
     Active Substance: MIRABEGRON
     Indication: HYPERTONIC BLADDER
     Route: 048
     Dates: start: 20141113
  2. VESICARE [Suspect]
     Active Substance: SOLIFENACIN SUCCINATE
     Route: 048
     Dates: start: 20141127
  3. BIOFERMIN R [Concomitant]
     Active Substance: BACILLUS SUBTILIS\LACTOBACILLUS ACIDOPHILUS\STREPTOCOCCUS FAECAIS
     Indication: PHARYNGOTONSILLITIS
     Dosage: 6 MG, THRICE DAILY, AFTER EVERY MEAL
     Route: 048
     Dates: start: 20150109, end: 20150111
  4. AZUNOL                             /00620101/ [Concomitant]
     Indication: ECZEMA
     Dosage: ADEQUATE DOSE
     Route: 061
     Dates: start: 20150525, end: 20150531
  5. CEFZON [Concomitant]
     Active Substance: CEFDINIR
     Indication: PHARYNGOTONSILLITIS
     Dosage: 100 MG, THRICE DAILY, AFTER EVERY MEAL
     Route: 048
     Dates: start: 20150109, end: 20150111
  6. LOCOID [Concomitant]
     Active Substance: HYDROCORTISONE BUTYRATE
     Indication: ECZEMA
     Dosage: ADEQUATE DOSE
     Route: 061
     Dates: start: 20150523, end: 20150525
  7. BETANIS [Suspect]
     Active Substance: MIRABEGRON
     Indication: HYPERTONIC BLADDER
     Route: 048
     Dates: start: 20130222
  8. BETANIS [Suspect]
     Active Substance: MIRABEGRON
     Route: 048
     Dates: start: 20141002, end: 20141112
  9. TRANSAMIN [Concomitant]
     Active Substance: TRANEXAMIC ACID
     Indication: PHARYNGOTONSILLITIS
     Dosage: 250 MG, THRICE DAILY, AFTER EVERY MEAL
     Route: 048
     Dates: start: 20150109, end: 20150111
  10. ALLEGRA [Concomitant]
     Active Substance: FEXOFENADINE HYDROCHLORIDE
     Indication: RHINITIS ALLERGIC
     Route: 048
  11. AZUNOL                             /00317302/ [Concomitant]
     Indication: PHARYNGOTONSILLITIS
     Dosage: ADEQUATE DOSE
     Route: 049
     Dates: start: 20150109, end: 20150111
  12. VESICARE [Suspect]
     Active Substance: SOLIFENACIN SUCCINATE
     Indication: HYPERTONIC BLADDER
     Route: 048
     Dates: start: 20120111, end: 20130221
  13. PA [Concomitant]
     Active Substance: ASPIRIN\CAFFEINE\PROMETHAZINE\SALICYLAMIDE
     Indication: PHARYNGOTONSILLITIS
     Dosage: 2 DF, THRICE DAILY, AFTER EVERY MEAL
     Route: 048
     Dates: start: 20150109, end: 20150111
  14. SP TROCHES [Concomitant]
     Indication: PHARYNGOTONSILLITIS
     Dosage: 1.50 MG, ONCE DAILY
     Route: 049
     Dates: start: 20150109, end: 20150111
  15. AZUNOL                             /00620101/ [Concomitant]
     Dosage: ADEQUATE DOSE
     Route: 061
     Dates: start: 20150610, end: 20150611
  16. KINDAVATE [Concomitant]
     Indication: ECZEMA
     Dosage: ADEQUATE DOSE
     Route: 061
     Dates: start: 20150601, end: 20150609
  17. CRAVIT [Concomitant]
     Active Substance: LEVOFLOXACIN
     Indication: CYSTITIS
     Route: 048
     Dates: start: 20150617, end: 20150621
  18. KINDAVATE [Concomitant]
     Dosage: UNK, UNKNOWN FREQ.
     Route: 061
  19. FLAVERIC [Concomitant]
     Active Substance: BENPROPERINE PHOSPHATE
     Indication: PHARYNGOTONSILLITIS
     Dosage: 20 MG, THRICE DAILY, AFTER EVERY MEAL
     Route: 048
     Dates: start: 20150109, end: 20150111
  20. BIOFERMIN                          /01617201/ [Concomitant]
     Active Substance: BACILLUS SUBTILIS\LACTOBACILLUS ACIDOPHILUS\STREPTOCOCCUS FAECAIS
     Indication: CYSTITIS
     Route: 048
     Dates: start: 20150617, end: 20150621

REACTIONS (4)
  - Eczema [Not Recovered/Not Resolved]
  - Eyelid operation [Recovered/Resolved]
  - Pharyngotonsillitis [Recovered/Resolved]
  - Cystitis [Recovered/Resolved]

NARRATIVE: CASE EVENT DATE: 20150108
